FAERS Safety Report 8541119-3 (Version None)
Quarter: 2012Q3

REPORT INFORMATION
  Report Type: 
  Country: None (occurrence: None)
  Receive Date: 20120726
  Receipt Date: 20110822
  Transmission Date: 20120928
  Serious: No
  Sender: FDA-Public Use
  Company Number: US-ASTRAZENECA-2011SE50249

PATIENT
  Age: 56 Year
  Sex: Male

DRUGS (6)
  1. PAXIL [Concomitant]
  2. FOLIC ACID [Concomitant]
  3. VITAMIN D [Concomitant]
  4. COGENTIN [Concomitant]
  5. SEROQUEL [Suspect]
     Indication: BIPOLAR DISORDER
     Route: 048
  6. THIAMINE [Concomitant]

REACTIONS (4)
  - INSOMNIA [None]
  - MANIA [None]
  - DECREASED APPETITE [None]
  - DRUG DOSE OMISSION [None]
